FAERS Safety Report 14754878 (Version 1)
Quarter: 2018Q2

REPORT INFORMATION
  Report Type: Spontaneous
  Country: VN (occurrence: VN)
  Receive Date: 20180413
  Receipt Date: 20180413
  Transmission Date: 20180711
  Serious: Yes (Other)
  Sender: FDA-Public Use
  Company Number: VN-ROCHE-2104004

PATIENT
  Age: 66 Year
  Sex: Female

DRUGS (8)
  1. IRINOTECAN [Suspect]
     Active Substance: IRINOTECAN
     Indication: COLON CANCER METASTATIC
     Dosage: IN AVASTIN-FOLFIRI
     Route: 065
     Dates: start: 201706, end: 201712
  2. XELODA [Suspect]
     Active Substance: CAPECITABINE
     Route: 048
     Dates: start: 201801
  3. OXALIPLATIN. [Suspect]
     Active Substance: OXALIPLATIN
     Indication: COLON CANCER METASTATIC
     Dosage: IN XELOX-AVASTIN, 8 CYCLES
     Route: 065
     Dates: end: 201610
  4. XELODA [Suspect]
     Active Substance: CAPECITABINE
     Indication: COLON CANCER METASTATIC
     Dosage: IN XELOX-AVASTIN, 8 CYCLES
     Route: 048
     Dates: end: 201610
  5. AVASTIN [Suspect]
     Active Substance: BEVACIZUMAB
     Dosage: IN AVASTIN-FOLFIRI
     Route: 065
     Dates: start: 201706, end: 201712
  6. 5-FLUOROURACIL [Suspect]
     Active Substance: FLUOROURACIL
     Indication: COLON CANCER METASTATIC
     Dosage: IN AVASTIN-FOLFIRI
     Route: 065
     Dates: start: 201706, end: 201712
  7. AVASTIN [Suspect]
     Active Substance: BEVACIZUMAB
     Indication: COLON CANCER METASTATIC
     Dosage: IN XELOX-AVASTIN, 8 CYCLES
     Route: 065
     Dates: end: 201610
  8. FOLINIC ACID [Suspect]
     Active Substance: LEUCOVORIN
     Indication: COLON CANCER METASTATIC
     Dosage: IN AVASTIN-FOLFIRI
     Route: 065
     Dates: start: 201706, end: 201712

REACTIONS (2)
  - Disease progression [Unknown]
  - Biliary dilatation [Unknown]

NARRATIVE: CASE EVENT DATE: 201706
